FAERS Safety Report 7960694-0 (Version None)
Quarter: 2011Q4

REPORT INFORMATION
  Report Type: 
  Country: None (occurrence: None)
  Receive Date: 20111206
  Receipt Date: 20111130
  Transmission Date: 20120403
  Serious: Yes (Death, Hospitalization)
  Sender: FDA-Public Use
  Company Number: US-CELGENEUS-087-50794-11092016

PATIENT
  Sex: Male
  Weight: 49 kg

DRUGS (35)
  1. MAXIPIME [Concomitant]
     Dosage: 3 MILLIGRAM
     Route: 041
     Dates: start: 20110509, end: 20110515
  2. FLUCONAZOLE [Concomitant]
     Dosage: 100 MILLIGRAM
     Route: 048
     Dates: start: 20110603, end: 20110614
  3. MAXIPIME [Concomitant]
     Dosage: 4 GRAM
     Route: 041
     Dates: start: 20110905, end: 20110907
  4. MEROPENEM [Concomitant]
     Dosage: 2 GRAM
     Route: 041
     Dates: start: 20110908, end: 20110912
  5. CIPROFLOXACIN [Concomitant]
     Dosage: 200 MILLIGRAM
     Route: 048
     Dates: start: 20110814, end: 20110826
  6. CIPROFLOXACIN [Concomitant]
     Dosage: 300 MILLIGRAM
     Route: 041
     Dates: start: 20110908, end: 20110911
  7. BACTRIM [Concomitant]
     Dosage: 10 MILLILITER
     Route: 041
     Dates: start: 20110908, end: 20110912
  8. SOLU-CORTEF [Concomitant]
     Dosage: 100 MILLIGRAM
     Route: 041
     Dates: start: 20110909, end: 20110912
  9. VIDAZA [Suspect]
     Dosage: 75 MILLIGRAM/SQ. METER
     Route: 058
     Dates: start: 20110905, end: 20110907
  10. CIPROFLOXACIN [Concomitant]
     Dosage: 600 MILLIGRAM
     Route: 041
     Dates: start: 20110908, end: 20110911
  11. FUROSEMIDE [Concomitant]
     Dosage: 20 MILLIGRAM
     Route: 048
     Dates: start: 20110907, end: 20110907
  12. MORPHINE HYDROCHLORIDE HYDRATE [Concomitant]
     Dosage: 100 MILLIGRAM
     Route: 041
     Dates: start: 20110909, end: 20110912
  13. LEVOFLOXACIN [Concomitant]
     Dosage: 500 MILLIGRAM
     Route: 048
     Dates: start: 20110509, end: 20110516
  14. CEFAZOLIN SODIUM [Concomitant]
     Dosage: 3 GRAM
     Route: 048
     Dates: start: 20110712, end: 20110906
  15. VITAMEDIN [Concomitant]
     Dosage: 1 DF
     Route: 048
     Dates: start: 20110712, end: 20110907
  16. VIDAZA [Suspect]
     Dosage: 75 MILLIGRAM/SQ. METER
     Route: 058
     Dates: start: 20110719, end: 20110725
  17. FUNGUARD [Concomitant]
     Dosage: 150 MILLIGRAM
     Route: 041
     Dates: start: 20110518, end: 20110602
  18. MEROPENEM [Concomitant]
     Dosage: 1 GRAM
     Route: 041
     Dates: start: 20110908, end: 20110912
  19. SUCRALFATE [Concomitant]
     Dosage: 3 DF
     Route: 048
     Dates: start: 20110511, end: 20110816
  20. RABEPRAZOLE SODIUM [Concomitant]
     Dosage: 10 MILLIGRAM
     Route: 048
     Dates: start: 20110701, end: 20110907
  21. SULFAMETHOXAZOLE AND TRIMETHOPRIM [Concomitant]
     Dosage: 4 GRAM
     Route: 048
     Dates: start: 20110907, end: 20110907
  22. MAXIPIME [Concomitant]
     Dosage: 4 GRAM
     Route: 041
     Dates: start: 20110515, end: 20110602
  23. FUNGUARD [Concomitant]
     Dosage: 150 MILLIGRAM
     Route: 041
     Dates: start: 20110905, end: 20110907
  24. FUNGUARD [Concomitant]
     Dosage: 150 MILLIGRAM
     Route: 041
     Dates: start: 20110907, end: 20110911
  25. RIKKUNSHI-TO [Concomitant]
     Dosage: 3 DF
     Route: 048
     Dates: start: 20110701, end: 20110907
  26. NAPROXEN [Concomitant]
     Dosage: 300 MILLIGRAM
     Route: 048
     Dates: start: 20110905, end: 20110907
  27. PERAPRIN [Concomitant]
     Dosage: 10 MILLIGRAM
     Route: 041
     Dates: start: 20110909, end: 20110909
  28. LANSOPRAZOLE [Concomitant]
     Dosage: 30 MILLIGRAM
     Route: 041
     Dates: start: 20110909, end: 20110912
  29. VIDAZA [Suspect]
     Dosage: 75 MILLIGRAM/SQ. METER
     Route: 058
     Dates: start: 20110617, end: 20110623
  30. FLUCONAZOLE [Concomitant]
     Dosage: 100 MILLIGRAM
     Route: 048
     Dates: start: 20110509, end: 20110518
  31. SUCRALFATE [Concomitant]
     Dosage: 1 DF
     Route: 048
     Dates: start: 20110510, end: 20110510
  32. FUROSEMIDE [Concomitant]
     Dosage: 20 MILLIGRAM
     Route: 041
     Dates: start: 20110908, end: 20110911
  33. DEXAMETHASONE SODIUM PHOSPHATE [Concomitant]
     Dosage: 20 MILLIGRAM
     Route: 041
     Dates: start: 20110909, end: 20110911
  34. VIDAZA [Suspect]
     Dosage: 75 MILLIGRAM/SQ. METER
     Route: 058
     Dates: start: 20110509, end: 20110515
  35. LEVOFLOXACIN [Concomitant]
     Dosage: 500 MILLIGRAM
     Route: 048
     Dates: start: 20110603, end: 20110620

REACTIONS (2)
  - FEBRILE NEUTROPENIA [None]
  - PNEUMONIA [None]
